FAERS Safety Report 11364496 (Version 1)
Quarter: 2015Q3

REPORT INFORMATION
  Report Type: Spontaneous
  Country: MX (occurrence: None)
  Receive Date: 20150810
  Receipt Date: 20150810
  Transmission Date: 20151125
  Serious: Yes (Other)
  Sender: FDA-Public Use
  Company Number: None

PATIENT
  Age: 54 Year
  Sex: Female
  Weight: 67 kg

DRUGS (3)
  1. AMIODARONA [Suspect]
     Active Substance: AMIODARONE
     Indication: ARRHYTHMIA
     Dosage: 1 PILS ONCE DAILY TAKEN BY MOUTH
     Route: 048
  2. AMIODARONA [Suspect]
     Active Substance: AMIODARONE
     Indication: SYNCOPE
     Dosage: 1 PILS ONCE DAILY TAKEN BY MOUTH
     Route: 048
  3. BOLTIN (TIBOLONE) [Concomitant]

REACTIONS (2)
  - Goitre [None]
  - Atelectasis [None]

NARRATIVE: CASE EVENT DATE: 20150702
